FAERS Safety Report 5595949-0 (Version None)
Quarter: 2008Q1

REPORT INFORMATION
  Report Type: 
  Country: None (occurrence: None)
  Receive Date: 20080118
  Receipt Date: 20080103
  Transmission Date: 20080703
  Serious: Yes (Hospitalization)
  Sender: FDA-Public Use
  Company Number: CA-WYE-G00623707

PATIENT
  Sex: Male
  Weight: 92 kg

DRUGS (17)
  1. SIROLIMUS [Suspect]
     Indication: IMMUNOSUPPRESSION
     Dosage: UNKNOWN
     Dates: start: 20061005, end: 20070308
  2. TACROLIMUS [Suspect]
     Indication: RENAL TRANSPLANT
     Route: 048
     Dates: start: 20070910
  3. NORVASC [Concomitant]
     Indication: HYPERTENSION
     Dosage: 10 MG EVERY
     Route: 048
     Dates: start: 20050209
  4. LIPITOR [Concomitant]
     Indication: DYSLIPIDAEMIA
     Dosage: 40 MG EVERY
     Route: 048
     Dates: start: 20060101
  5. INSULINE RAPITARD [Concomitant]
     Indication: DIABETES MELLITUS
     Dosage: UNKNOWN
     Route: 058
  6. LANTUS [Concomitant]
     Indication: DIABETES MELLITUS
     Dosage: UNKNOWN
     Route: 058
     Dates: start: 20060501
  7. CALCIUM GLUCONATE [Concomitant]
     Indication: HYPOCALCAEMIA
  8. NOVORAPID [Concomitant]
     Indication: DIABETES MELLITUS
     Dosage: PRN
     Route: 058
     Dates: start: 20060501
  9. LOPRESSOR [Concomitant]
     Indication: HYPERTENSION
     Dosage: 150 MG EVERY
     Route: 048
     Dates: start: 20061103
  10. MONOPRIL [Concomitant]
     Indication: HYPERTENSION
     Dosage: 20 MG EVERY
     Route: 048
     Dates: start: 20070209
  11. ASPIRIN [Concomitant]
     Indication: PROPHYLAXIS
     Dosage: 80 MG EVERY
     Route: 048
     Dates: start: 20060101
  12. EPREX [Concomitant]
     Indication: ANAEMIA
     Dosage: 5000 UNIT EVERY
     Route: 058
     Dates: start: 20071016
  13. IMDUR [Concomitant]
     Indication: ANGINA PECTORIS
     Dosage: 60 MG EVERY
     Route: 048
     Dates: start: 20070101
  14. PANTOLOC [Concomitant]
     Indication: PROPHYLAXIS
     Dosage: 40 MG EVERY
     Route: 048
     Dates: start: 20060501
  15. MOTILIUM [Concomitant]
     Indication: PROPHYLAXIS
     Dosage: 40 MG EVERY
     Route: 048
     Dates: start: 20060501
  16. CELLCEPT [Suspect]
     Indication: RENAL TRANSPLANT
     Dosage: 1000 MG EVERY
     Route: 048
     Dates: start: 20070401, end: 20071108
  17. CELLCEPT [Suspect]
     Dosage: 2000 MG EVERY
     Route: 048
     Dates: start: 20071109

REACTIONS (1)
  - TRANSPLANT REJECTION [None]
